FAERS Safety Report 17676038 (Version 1)
Quarter: 2020Q2

REPORT INFORMATION
  Report Type: Report from Study
  Country: None (occurrence: US)
  Receive Date: 20200416
  Receipt Date: 20200416
  Transmission Date: 20200714
  Serious: Yes (Hospitalization)
  Sender: FDA-Public Use
  Company Number: US-ABBVIE-20K-163-3366625-00

PATIENT
  Sex: Male

DRUGS (1)
  1. HUMIRA [Suspect]
     Active Substance: ADALIMUMAB
     Indication: COLITIS ULCERATIVE
     Dosage: CITRATE FREE
     Route: 058
     Dates: start: 20191114

REACTIONS (6)
  - Vertigo [Unknown]
  - Feeling abnormal [Unknown]
  - Hypertension [Unknown]
  - Middle insomnia [Unknown]
  - Asthenia [Unknown]
  - Cerebrovascular accident [Recovering/Resolving]
